FAERS Safety Report 7075366-7 (Version None)
Quarter: 2010Q4

REPORT INFORMATION
  Report Type: 
  Country: None (occurrence: None)
  Receive Date: 20101030
  Receipt Date: 20100902
  Transmission Date: 20110411
  Serious: No
  Sender: FDA-Public Use
  Company Number: US-WYE-H16813210

PATIENT

DRUGS (1)
  1. TORISEL [Suspect]
     Dosage: DOSE AND FREQUENCY UNSPECIFIED
     Route: 042

REACTIONS (1)
  - DISEASE PROGRESSION [None]
